FAERS Safety Report 21735640 (Version 1)
Quarter: 2022Q4

REPORT INFORMATION
  Report Type: Report from Study
  Country: PH (occurrence: PH)
  Receive Date: 20221215
  Receipt Date: 20221215
  Transmission Date: 20230112
  Serious: Yes (Hospitalization, Other)
  Sender: FDA-Public Use
  Company Number: PH-JNJFOC-20221149971

PATIENT
  Sex: Male

DRUGS (1)
  1. RIBOMUSTIN [Suspect]
     Active Substance: BENDAMUSTINE HYDROCHLORIDE
     Indication: Lymphocytic lymphoma
     Route: 042

REACTIONS (5)
  - Pneumonia [Unknown]
  - Blood pressure increased [Unknown]
  - COVID-19 [Unknown]
  - Chills [Unknown]
  - Swelling [Unknown]
